FAERS Safety Report 4293465-X (Version None)
Quarter: 2004Q1

REPORT INFORMATION
  Report Type: 
  Country: None (occurrence: None)
  Receive Date: 20040126
  Receipt Date: 20030923
  Transmission Date: 20041129
  Serious: No
  Sender: FDA-Public Use
  Company Number: USA030844490

PATIENT
  Age: 62 Year
  Sex: Female
  Weight: 42 kg

DRUGS (12)
  1. FORTEO [Suspect]
     Indication: OSTEOPOROSIS
     Dosage: 20/UG IN THE MORNING
     Dates: start: 20030812
  2. SYNTHROID [Concomitant]
  3. FOSAMAX [Concomitant]
  4. AVAPRO [Concomitant]
  5. PLAVIX [Concomitant]
  6. LIPITOR [Concomitant]
  7. FLONASE [Concomitant]
  8. FLEXERIL [Concomitant]
  9. FIORINAL [Concomitant]
  10. XANAX [Concomitant]
  11. CALTRATE (CALDIUM CARBONATE) [Concomitant]
  12. INDERAL [Concomitant]

REACTIONS (2)
  - HEART RATE INCREASED [None]
  - HOT FLUSH [None]
